FAERS Safety Report 6150741-3 (Version None)
Quarter: 2009Q2

REPORT INFORMATION
  Report Type: 
  Country: None (occurrence: None)
  Receive Date: 20090408
  Receipt Date: 20090326
  Transmission Date: 20091009
  Serious: Yes (Hospitalization, Other)
  Sender: FDA-Public Use
  Company Number: SPV1-2009-00340

PATIENT
  Age: 2 Year
  Sex: Male

DRUGS (1)
  1. ELAPRASE [Suspect]
     Dosage: 0.5 MG/KG, 1X/WEEK, IV DRIP
     Route: 041
     Dates: start: 20070523

REACTIONS (4)
  - BLOOD CULTURE POSITIVE [None]
  - DEVICE RELATED INFECTION [None]
  - INFLUENZA SEROLOGY POSITIVE [None]
  - STREPTOCOCCAL INFECTION [None]
